FAERS Safety Report 24000924 (Version 1)
Quarter: 2024Q2

REPORT INFORMATION
  Report Type: Spontaneous
  Country: US (occurrence: US)
  Receive Date: 20240621
  Receipt Date: 20240621
  Transmission Date: 20240716
  Serious: Yes (Other)
  Sender: FDA-Public Use
  Company Number: US-PERRIGO-24US005776

PATIENT
  Sex: Male
  Weight: 93.424 kg

DRUGS (2)
  1. PHENYLEPHRINE HYDROCHLORIDE [Suspect]
     Active Substance: PHENYLEPHRINE HYDROCHLORIDE
     Indication: Nasal congestion
     Dosage: 2 SPRAYS IN EACH NOSTRIL, Q4-5H
     Route: 045
     Dates: start: 2004, end: 202402
  2. PHENYLEPHRINE HYDROCHLORIDE [Suspect]
     Active Substance: PHENYLEPHRINE HYDROCHLORIDE
     Dosage: 2 SPRAYS IN EACH NOSTRIL, Q2H
     Route: 045
     Dates: start: 202402

REACTIONS (4)
  - Drug dependence [Not Recovered/Not Resolved]
  - Inappropriate schedule of product administration [Not Recovered/Not Resolved]
  - Incorrect product administration duration [Not Recovered/Not Resolved]
  - Product use in unapproved indication [Not Recovered/Not Resolved]

NARRATIVE: CASE EVENT DATE: 20040101
